FAERS Safety Report 9115906 (Version 2)
Quarter: 2013Q1

REPORT INFORMATION
  Report Type: Spontaneous
  Country: JP (occurrence: JP)
  Receive Date: 20130225
  Receipt Date: 20130304
  Transmission Date: 20140127
  Serious: Yes (Other)
  Sender: FDA-Public Use
  Company Number: JP-GLAXOSMITHKLINE-B0866293A

PATIENT
  Age: 80 Year
  Sex: Female
  Weight: 65 kg

DRUGS (9)
  1. VALTREX [Suspect]
     Indication: HERPES ZOSTER
     Dosage: 1000MG THREE TIMES PER DAY
     Route: 048
     Dates: start: 20130128, end: 20130202
  2. PAXIL CR [Concomitant]
     Indication: ANXIETY DISORDER
     Dosage: 25MG PER DAY
     Route: 048
     Dates: end: 20130202
  3. THYRADIN S [Concomitant]
     Indication: HYPOTHYROIDISM
     Dosage: 50MG PER DAY
     Route: 048
  4. TICPILONE [Concomitant]
     Indication: CEREBRAL INFARCTION
     Dosage: 100MG PER DAY
     Route: 048
  5. FUROSEMIDE [Concomitant]
     Indication: CARDIAC HYPERTROPHY
     Dosage: 20MG PER DAY
     Route: 048
  6. CADUET [Concomitant]
     Indication: HYPERTENSION
     Dosage: 1IUAX PER DAY
     Route: 048
  7. DIAZEPAM [Concomitant]
     Dosage: 1IUAX PER DAY
     Route: 048
     Dates: end: 20130202
  8. MYSLEE [Concomitant]
     Dosage: 1IUAX PER DAY
     Route: 048
     Dates: end: 20130202
  9. MICARDIS [Concomitant]
     Dosage: 1IUAX PER DAY
     Route: 048

REACTIONS (4)
  - Renal failure acute [Recovered/Resolved]
  - Dysarthria [Unknown]
  - Malaise [Unknown]
  - Bedridden [Unknown]
